FAERS Safety Report 9185278 (Version 1)
Quarter: 2012Q4

REPORT INFORMATION
  Report Type: 
  Country: US (occurrence: US)
  Receive Date: 20121101
  Receipt Date: 20121101
  Transmission Date: 20130627
  Serious: Yes (Other)
  Sender: FDA-Public Use
  Company Number: US-PFIZER INC-2012269278

PATIENT
  Age: 48 Year
  Sex: Female
  Weight: 84.35 kg

DRUGS (14)
  1. LYRICA [Suspect]
     Indication: DIABETIC NEUROPATHY
     Dosage: 100 mg, 2x/day
     Route: 048
  2. LYRICA [Suspect]
     Indication: SHINGLES
  3. LYRICA [Suspect]
     Indication: FIBROMYALGIA
  4. AMBIEN [Concomitant]
     Indication: SLEEP DISORDER
     Dosage: 10 mg, daily
  5. HUMULIN N [Concomitant]
     Indication: DIABETES
     Dosage: 7 IU, 2x/day
  6. INSULIN DETEMIR [Concomitant]
     Indication: DIABETES
     Dosage: 12 IU, daily
  7. CYMBALTA [Concomitant]
     Indication: NERVOUS SYSTEM DISORDER
     Dosage: 60 mg, 2x/day
  8. KLONOPIN [Concomitant]
     Indication: NERVOUS SYSTEM DISORDER
     Dosage: 0.5 mg, 3x/day
  9. VICODIN [Concomitant]
     Indication: PAIN
     Dosage: 5/500 mg, 2x/day
  10. PROTONIX [Concomitant]
     Indication: GASTROPARESIS
     Dosage: 40 mg, 2x/day
  11. PHENERGAN [Concomitant]
     Indication: GASTROPARESIS
     Dosage: 25 mg, every 4 hrs
     Route: 048
  12. PHENERGAN [Concomitant]
     Indication: GASTROPARESIS
     Dosage: 25 mg, as needed
     Route: 054
  13. ZOFRAN [Concomitant]
     Indication: GASTROPARESIS
     Dosage: 4 mg, as needed
  14. IMITREX [Concomitant]
     Indication: MIGRAINE
     Dosage: 100 mg, as needed

REACTIONS (1)
  - Tooth fracture [Unknown]
